FAERS Safety Report 5303172-X (Version None)
Quarter: 2007Q2

REPORT INFORMATION
  Report Type: 
  Country: None (occurrence: None)
  Receive Date: 20070420
  Receipt Date: 20070412
  Transmission Date: 20071010
  Serious: Yes (Hospitalization)
  Sender: FDA-Public Use
  Company Number: 2007AP01849

PATIENT
  Age: 19435 Day
  Sex: Male
  Weight: 68 kg

DRUGS (2)
  1. OMEPRAL [Suspect]
     Indication: GASTRIC MUCOSAL LESION
     Route: 048
     Dates: start: 20070319, end: 20070322
  2. MUCOSTA [Concomitant]
     Indication: GASTRIC MUCOSAL LESION
     Route: 048
     Dates: start: 20070319, end: 20070322

REACTIONS (1)
  - OCULOMUCOCUTANEOUS SYNDROME [None]
